FAERS Safety Report 21830806 (Version 2)
Quarter: 2025Q3

REPORT INFORMATION
  Report Type: Spontaneous
  Country: EU (occurrence: EU)
  Receive Date: 20230106
  Receipt Date: 20250811
  Transmission Date: 20251021
  Serious: Yes (Hospitalization, Other)
  Sender: MYLAN
  Company Number: EU-drreddys-GER/SPN/19/0109552

PATIENT
  Age: 28 Year
  Sex: Male

DRUGS (33)
  1. ETOPOSIDE [Suspect]
     Active Substance: ETOPOSIDE
     Indication: Non-Hodgkin^s lymphoma stage II
  2. BENDAMUSTINE [Suspect]
     Active Substance: BENDAMUSTINE
     Indication: Non-Hodgkin^s lymphoma stage II
  3. BENDAMUSTINE [Suspect]
     Active Substance: BENDAMUSTINE
  4. BENDAMUSTINE [Suspect]
     Active Substance: BENDAMUSTINE
  5. BENDAMUSTINE [Suspect]
     Active Substance: BENDAMUSTINE
  6. BENDAMUSTINE [Suspect]
     Active Substance: BENDAMUSTINE
  7. BENDAMUSTINE [Suspect]
     Active Substance: BENDAMUSTINE
  8. BENDAMUSTINE [Suspect]
     Active Substance: BENDAMUSTINE
  9. BENDAMUSTINE [Suspect]
     Active Substance: BENDAMUSTINE
  10. BENDAMUSTINE [Suspect]
     Active Substance: BENDAMUSTINE
  11. BENDAMUSTINE [Suspect]
     Active Substance: BENDAMUSTINE
  12. BENDAMUSTINE [Suspect]
     Active Substance: BENDAMUSTINE
  13. BENDAMUSTINE [Suspect]
     Active Substance: BENDAMUSTINE
  14. BENDAMUSTINE [Suspect]
     Active Substance: BENDAMUSTINE
  15. BENDAMUSTINE [Suspect]
     Active Substance: BENDAMUSTINE
  16. BENDAMUSTINE [Suspect]
     Active Substance: BENDAMUSTINE
  17. BENDAMUSTINE [Suspect]
     Active Substance: BENDAMUSTINE
  18. PREDNISONE [Suspect]
     Active Substance: PREDNISONE
     Indication: Non-Hodgkin^s lymphoma stage II
  19. PREDNISONE [Suspect]
     Active Substance: PREDNISONE
     Indication: Non-Hodgkin^s lymphoma
  20. CISPLATIN [Suspect]
     Active Substance: CISPLATIN
     Indication: Non-Hodgkin^s lymphoma stage II
  21. CYTARABINE [Suspect]
     Active Substance: CYTARABINE
     Indication: Non-Hodgkin^s lymphoma stage II
  22. DOXORUBICIN [Suspect]
     Active Substance: DOXORUBICIN
     Indication: Non-Hodgkin^s lymphoma stage II
  23. GEMCITABINE [Suspect]
     Active Substance: GEMCITABINE
     Indication: Non-Hodgkin^s lymphoma stage II
  24. OXALIPLATIN [Suspect]
     Active Substance: OXALIPLATIN
     Indication: Non-Hodgkin^s lymphoma stage II
  25. CYCLOPHOSPHAMIDE [Suspect]
     Active Substance: CYCLOPHOSPHAMIDE
     Indication: Non-Hodgkin^s lymphoma stage II
  26. VINCRISTINE SULFATE [Suspect]
     Active Substance: VINCRISTINE SULFATE
     Indication: Non-Hodgkin^s lymphoma stage II
  27. METHYLPREDNISOLONE [Suspect]
     Active Substance: METHYLPREDNISOLONE
     Indication: Non-Hodgkin^s lymphoma stage II
  28. METHYLPREDNISOLONE [Suspect]
     Active Substance: METHYLPREDNISOLONE
  29. GENOXAL [Suspect]
     Active Substance: CYCLOPHOSPHAMIDE
     Indication: Non-Hodgkin^s lymphoma
  30. GENOXAL [Suspect]
     Active Substance: CYCLOPHOSPHAMIDE
     Indication: Non-Hodgkin^s lymphoma stage II
  31. MONTELUKAST [Concomitant]
     Active Substance: MONTELUKAST
     Indication: Premedication
  32. BRENTUXIMAB VEDOTIN [Concomitant]
     Active Substance: BRENTUXIMAB VEDOTIN
     Indication: Non-Hodgkin^s lymphoma stage II
  33. BRENTUXIMAB VEDOTIN [Concomitant]
     Active Substance: BRENTUXIMAB VEDOTIN

REACTIONS (12)
  - Non-Hodgkin^s lymphoma [Unknown]
  - Temperature regulation disorder [Recovered/Resolved]
  - Angioedema [Recovered/Resolved]
  - Type IV hypersensitivity reaction [Recovered/Resolved]
  - Dyspnoea [Recovered/Resolved]
  - Rash [Recovered/Resolved]
  - Rash maculo-papular [Recovered/Resolved]
  - Rash pruritic [Recovered/Resolved]
  - Pyrexia [Recovered/Resolved]
  - Pruritus [Recovered/Resolved]
  - Drug ineffective [Unknown]
  - Therapy non-responder [Unknown]

NARRATIVE: CASE EVENT DATE: 20170101
